FAERS Safety Report 16771302 (Version 3)
Quarter: 2024Q3

REPORT INFORMATION
  Report Type: Report from Study
  Country: US (occurrence: US)
  Receive Date: 20190904
  Receipt Date: 20240715
  Transmission Date: 20241016
  Serious: Yes (Other)
  Sender: KYOWA
  Company Number: US-KYOWAKIRIN-2019BKK013681

PATIENT

DRUGS (2)
  1. BUROSUMAB [Suspect]
     Active Substance: BUROSUMAB
     Indication: Hereditary hypophosphataemic rickets
     Dosage: 90 MG/ML, 1X/4 WEEKS
     Route: 065
     Dates: start: 20180916
  2. BUROSUMAB [Suspect]
     Active Substance: BUROSUMAB
     Dosage: UNK, 1X/4 WEEKS
     Route: 065
     Dates: start: 202407

REACTIONS (9)
  - Pulmonary congestion [Unknown]
  - Pulmonary function test decreased [Unknown]
  - Illness [Recovered/Resolved]
  - Urinary tract infection [Unknown]
  - COVID-19 [Unknown]
  - Muscle spasms [Unknown]
  - Pain [Recovered/Resolved]
  - Urticaria [Unknown]
  - Muscle spasms [Unknown]

NARRATIVE: CASE EVENT DATE: 20180101
